FAERS Safety Report 9440224 (Version 1)
Quarter: 2013Q3

REPORT INFORMATION
  Report Type: Report from Study
  Country: US (occurrence: US)
  Receive Date: 20130805
  Receipt Date: 20130805
  Transmission Date: 20140515
  Serious: Yes (Other)
  Sender: FDA-Public Use
  Company Number: PHEH2013US001967

PATIENT
  Age: 24 Year
  Sex: Male
  Weight: 77.98 kg

DRUGS (5)
  1. GILENYA [Suspect]
     Indication: RELAPSING-REMITTING MULTIPLE SCLEROSIS
     Dosage: 0.5 MG, QD
     Route: 048
     Dates: start: 20130118, end: 20130118
  2. AMITRIPTYLINE [Concomitant]
  3. MULTIVITAMIN                       /00097801/ [Concomitant]
  4. TYLENOL                            /00435101/ [Concomitant]
  5. VITAMIN D [Concomitant]

REACTIONS (4)
  - Arrhythmia [Recovered/Resolved]
  - Heart rate irregular [Recovered/Resolved]
  - Atrioventricular block second degree [Recovered/Resolved]
  - Heart rate decreased [Recovered/Resolved]
